FAERS Safety Report 7046431-5 (Version None)
Quarter: 2010Q4

REPORT INFORMATION
  Report Type: 
  Country: None (occurrence: None)
  Receive Date: 20101014
  Receipt Date: 20101011
  Transmission Date: 20110411
  Serious: No
  Sender: FDA-Public Use
  Company Number: US-PFIZER INC-2009239104

PATIENT
  Sex: Male
  Weight: 41 kg

DRUGS (2)
  1. GENOTROPIN [Suspect]
     Indication: BODY HEIGHT BELOW NORMAL
     Dosage: 0.8 MG, 1X/DAY
     Route: 058
     Dates: start: 20090523
  2. ZYRTEC [Concomitant]
     Indication: HYPERSENSITIVITY
     Dosage: UNK, 2X/DAY
     Dates: start: 20070101

REACTIONS (2)
  - INJECTION SITE PAIN [None]
  - SKIN REACTION [None]
